FAERS Safety Report 10400266 (Version 1)
Quarter: 2014Q3

REPORT INFORMATION
  Report Type: Spontaneous
  Country: PT (occurrence: PT)
  Receive Date: 20140821
  Receipt Date: 20140821
  Transmission Date: 20150326
  Serious: Yes (Other)
  Sender: FDA-Public Use
  Company Number: PT-ACTAVIS-2014-17895

PATIENT
  Age: 31 Year
  Sex: Female

DRUGS (9)
  1. HYDROCORTISONE (UNKNOWN) [Suspect]
     Active Substance: HYDROCORTISONE
     Indication: EYELID OEDEMA
     Dosage: UNK
     Route: 061
  2. METHYLPREDNISOLONE (UNKNOWN) [Suspect]
     Active Substance: METHYLPREDNISOLONE
     Indication: DIAGNOSTIC PROCEDURE
     Dosage: UNK
     Route: 023
  3. CLARITHROMYCIN. [Concomitant]
     Active Substance: CLARITHROMYCIN
     Indication: ALLERGY TO ARTHROPOD BITE
     Dosage: UNK
     Route: 065
  4. PREDNISOLONE (UNKNOWN) [Suspect]
     Active Substance: PREDNISOLONE
     Indication: DIAGNOSTIC PROCEDURE
     Dosage: UNK
     Route: 023
  5. DEFLAZACORT [Suspect]
     Active Substance: DEFLAZACORT
     Indication: EYELID OEDEMA
  6. CLARITHROMYCIN. [Concomitant]
     Active Substance: CLARITHROMYCIN
     Indication: EYELID OEDEMA
  7. HYDROCORTISONE (UNKNOWN) [Suspect]
     Active Substance: HYDROCORTISONE
     Indication: ALLERGY TO ARTHROPOD BITE
     Dosage: UNK
     Route: 042
  8. DEFLAZACORT [Suspect]
     Active Substance: DEFLAZACORT
     Indication: ALLERGY TO ARTHROPOD BITE
     Dosage: 6 MG, DAILY
     Route: 065
  9. TIXOCORTOL PIVALATE [Suspect]
     Active Substance: TIXOCORTOL PIVALATE
     Indication: DIAGNOSTIC PROCEDURE
     Dosage: UNK
     Route: 062

REACTIONS (3)
  - Drug hypersensitivity [Unknown]
  - Urticaria [Unknown]
  - Acute generalised exanthematous pustulosis [Unknown]
